FAERS Safety Report 17850077 (Version 1)
Quarter: 2020Q2

REPORT INFORMATION
  Report Type: Spontaneous
  Country: US (occurrence: US)
  Receive Date: 20200602
  Receipt Date: 20200602
  Transmission Date: 20200714
  Serious: No
  Sender: FDA-Public Use
  Company Number: US-MYLANLABS-2020M1050965

PATIENT
  Sex: Female
  Weight: 54 kg

DRUGS (5)
  1. GABAPENTIN. [Concomitant]
     Active Substance: GABAPENTIN
     Dosage: 100 MILLIGRAM, QD (EVERY EVENING)
  2. REMERON [Concomitant]
     Active Substance: MIRTAZAPINE
     Dosage: 7.5 MG DAILY IN EVENING
  3. WELLBUTRIN [Concomitant]
     Active Substance: BUPROPION HYDROCHLORIDE
     Dosage: 300 MILLIGRAM, QD
  4. GLATIRAMER ACETATE INJECTION [Suspect]
     Active Substance: GLATIRAMER ACETATE
     Indication: MULTIPLE SCLEROSIS
     Dosage: 3 TIMES A WEEK
     Route: 058
     Dates: start: 20200515
  5. TRULANCE [Concomitant]
     Active Substance: PLECANATIDE
     Dosage: 3 MILLIGRAM, QD

REACTIONS (1)
  - Incorrect dose administered [Not Recovered/Not Resolved]

NARRATIVE: CASE EVENT DATE: 20200515
